FAERS Safety Report 9112429 (Version 1)
Quarter: 2013Q1

REPORT INFORMATION
  Report Type: Spontaneous
  Country: US (occurrence: US)
  Receive Date: 20130219
  Receipt Date: 20130219
  Transmission Date: 20140127
  Serious: No
  Sender: FDA-Public Use
  Company Number: US-BRISTOL-MYERS SQUIBB COMPANY-16418832

PATIENT
  Age: 43 Year
  Sex: Female
  Weight: 81.63 kg

DRUGS (5)
  1. ORENCIA [Suspect]
     Indication: RHEUMATOID ARTHRITIS
     Dosage: 24FEB12-125MG, INJ: 25FEB12, ?LAST INF:06MAR12, ALSO TAKEN AS IV 750MG FROM 24FEB-13MAR2012
     Route: 058
     Dates: start: 20120224, end: 20120313
  2. CARVEDILOL [Concomitant]
  3. ENALAPRIL [Concomitant]
  4. FUROSEMIDE [Concomitant]
  5. SPIRONOLACTONE [Concomitant]

REACTIONS (4)
  - Migraine [Not Recovered/Not Resolved]
  - Swelling face [Unknown]
  - Amnesia [Unknown]
  - Headache [Unknown]
